FAERS Safety Report 25738496 (Version 1)
Quarter: 2025Q3

REPORT INFORMATION
  Report Type: Report from Study
  Country: CN (occurrence: CN)
  Receive Date: 20250829
  Receipt Date: 20250829
  Transmission Date: 20251020
  Serious: Yes (Other)
  Sender: ROCHE
  Company Number: CN-ROCHE-10000369348

PATIENT

DRUGS (2)
  1. MYCOPHENOLATE MOFETIL [Suspect]
     Active Substance: MYCOPHENOLATE MOFETIL
     Indication: Systemic lupus erythematosus
     Route: 065
  2. METHYLPREDNISOLONE [Suspect]
     Active Substance: METHYLPREDNISOLONE
     Indication: Systemic lupus erythematosus
     Route: 065

REACTIONS (16)
  - Interstitial lung disease [Unknown]
  - Leukopenia [Unknown]
  - Thrombocytopenia [Unknown]
  - Haemolytic anaemia [Unknown]
  - Pulmonary haemorrhage [Unknown]
  - Pulmonary arterial hypertension [Unknown]
  - Pericardial effusion [Unknown]
  - Vasculitis gastrointestinal [Unknown]
  - Hepatic function abnormal [Unknown]
  - Pancreatitis acute [Unknown]
  - Haemophagocytic lymphohistiocytosis [Unknown]
  - Seizure [Unknown]
  - Mental disorder [Unknown]
  - Muscular weakness [Unknown]
  - Headache [Unknown]
  - Hypertension [Unknown]
